FAERS Safety Report 8363241-7 (Version None)
Quarter: 2012Q2

REPORT INFORMATION
  Report Type: 
  Country: None (occurrence: None)
  Receive Date: 20120516
  Receipt Date: 20111205
  Transmission Date: 20120825
  Serious: Yes (Hospitalization)
  Sender: FDA-Public Use
  Company Number: US-ALEXION-A201101835

PATIENT
  Sex: Female
  Weight: 37 kg

DRUGS (23)
  1. PROCRIT [Concomitant]
     Indication: ANAEMIA
     Dosage: 29000 IU, QW
  2. LOPRESSOR [Concomitant]
     Dosage: 100 MG, QD
  3. LAMICTAL [Concomitant]
     Dosage: 100 MG, QD
  4. SOLIRIS [Suspect]
     Dosage: 1200 MG
     Route: 042
     Dates: start: 20111207
  5. CELEXA [Concomitant]
     Dosage: 40 MG, QD
  6. TRAZODONE HCL [Concomitant]
     Dosage: 50 MG, UNK
  7. ADDERALL 5 [Concomitant]
     Indication: ATTENTION DEFICIT/HYPERACTIVITY DISORDER
     Dosage: 7.5 MG, QD IN AM
  8. SOLIRIS [Suspect]
     Dosage: 900 MG
     Route: 042
     Dates: start: 20111026, end: 20111123
  9. SENSIPAR [Concomitant]
     Dosage: 60 MG, QD
  10. SOLIRIS [Suspect]
     Indication: HAEMOLYTIC URAEMIC SYNDROME
     Dosage: 600 MG
     Route: 042
     Dates: start: 20111012, end: 20111019
  11. SYNTHROID [Concomitant]
     Indication: HYPOTHYROIDISM
     Dosage: 75 UG, QD
  12. MIDODRINE HYDROCHLORIDE [Concomitant]
     Indication: HYPOTENSION
     Dosage: 10 MG, TID
  13. ADDERALL 5 [Concomitant]
     Dosage: 3.75 MG, QD IN PM
  14. HECTOROL [Concomitant]
     Dosage: 25 MG, QD
  15. CARDIZEM CD [Concomitant]
     Dosage: 180 MG, QD
  16. PROMETRIUM [Concomitant]
     Dosage: UNK, QD
  17. SEVELAMER [Concomitant]
     Dosage: 800 MG, 2 WITH EACH MEAL
  18. CRESTOR [Concomitant]
     Indication: LIPIDS INCREASED
     Dosage: 10 MG, QD
  19. CLONIDINE [Concomitant]
     Dosage: 0.1 MG, PRN
  20. KLONOPIN [Concomitant]
     Dosage: 0.5 MG, PRN
  21. FEMTRACE [Concomitant]
     Dosage: 1.8 MG, QD
  22. PRILOSEC [Concomitant]
     Dosage: 40 MG, QD
  23. ATIVAN [Concomitant]
     Dosage: 1 MG, 2 BEFORE DIALYSIS

REACTIONS (1)
  - STAPHYLOCOCCAL INFECTION [None]
